FAERS Safety Report 17506825 (Version 1)
Quarter: 2020Q1

REPORT INFORMATION
  Report Type: Spontaneous
  Country: US (occurrence: US)
  Receive Date: 20200306
  Receipt Date: 20200306
  Transmission Date: 20200409
  Serious: No
  Sender: FDA-Public Use
  Company Number: US-TEVA-2020-US-1192812

PATIENT
  Age: 82 Year
  Sex: Female

DRUGS (1)
  1. AZITHROMYCIN ANHYDROUS. [Suspect]
     Active Substance: AZITHROMYCIN ANHYDROUS
     Dosage: TWO TABLETS FOR HER INITIAL DOSE WITHOUT FOOD
     Route: 065
     Dates: start: 20200222

REACTIONS (5)
  - Malaise [Recovering/Resolving]
  - Abdominal pain upper [Unknown]
  - Diarrhoea [Unknown]
  - Presyncope [Recovered/Resolved]
  - Dizziness [Unknown]
